FAERS Safety Report 8023798-2 (Version None)
Quarter: 2012Q1

REPORT INFORMATION
  Report Type: 
  Country: None (occurrence: None)
  Receive Date: 20120103
  Receipt Date: 20120103
  Transmission Date: 20120608
  Serious: No
  Sender: FDA-Public Use
  Company Number: None

PATIENT
  Age: 34 Year
  Sex: Female
  Weight: 78.9259 kg

DRUGS (1)
  1. ESTRADIOL [Suspect]
     Dates: start: 19950215, end: 19950331

REACTIONS (1)
  - MALABSORPTION [None]
